FAERS Safety Report 11642157 (Version 1)
Quarter: 2015Q4

REPORT INFORMATION
  Report Type: Spontaneous
  Country: US (occurrence: US)
  Receive Date: 20151019
  Receipt Date: 20151019
  Transmission Date: 20160304
  Serious: Yes (Other)
  Sender: FDA-Public Use
  Company Number: PHHY2015US124076

PATIENT
  Age: 63 Year
  Sex: Male

DRUGS (2)
  1. PREDNISONE. [Suspect]
     Active Substance: PREDNISONE
     Indication: AUTOIMMUNE NEUROPATHY
     Route: 065
  2. MYCOPHENOLATE MOFETIL. [Suspect]
     Active Substance: MYCOPHENOLATE MOFETIL
     Indication: AUTOIMMUNE NEUROPATHY
     Dosage: 1000 MG, BID
     Route: 065

REACTIONS (2)
  - Antiacetylcholine receptor antibody positive [Recovered/Resolved]
  - Diffuse large B-cell lymphoma [Recovered/Resolved]
